FAERS Safety Report 4293678-7 (Version None)
Quarter: 2004Q1

REPORT INFORMATION
  Report Type: 
  Country: None (occurrence: None)
  Receive Date: 20040212
  Receipt Date: 20031111
  Transmission Date: 20041129
  Serious: Yes (Death, Other)
  Sender: FDA-Public Use
  Company Number: US-BRISTOL-MYERS SQUIBB COMPANY-12432993

PATIENT
  Age: 42 Year
  Sex: Female

DRUGS (7)
  1. ABILIFY [Suspect]
     Indication: BIPOLAR DISORDER
     Dosage: 1/2 - 1 PILL
     Route: 048
     Dates: start: 20030707
  2. ZYPREXA [Concomitant]
     Dosage: INITIAL DOSE: 10 MG/DAY FROM 07-JUL-2003, INCREASED TO 15 MG/DAY ON 22-JUL-2003.
     Route: 048
     Dates: start: 20030722
  3. AMBIEN [Concomitant]
     Route: 048
     Dates: start: 20030707
  4. LEXAPRO [Concomitant]
     Dosage: 1-2 PILLS/DAY FROM 07-JUL-03, 10-20 MG/DAY FROM 22-JUL-03, INCREASED TO 20 MG/DAY ON 11-AUG-03.
     Dates: start: 20030811
  5. TRAZODONE HCL [Concomitant]
     Dates: start: 20030811
  6. VALIUM [Concomitant]
  7. KLONOPIN [Concomitant]

REACTIONS (6)
  - AGGRESSION [None]
  - CORONARY ARTERY ATHEROSCLEROSIS [None]
  - DEPRESSION [None]
  - DRUG ABUSER [None]
  - MOOD SWINGS [None]
  - SLEEP DISORDER [None]
